FAERS Safety Report 23812932 (Version 1)
Quarter: 2024Q2

REPORT INFORMATION
  Report Type: Spontaneous
  Country: DE (occurrence: DE)
  Receive Date: 20240503
  Receipt Date: 20240503
  Transmission Date: 20240716
  Serious: Yes (Other)
  Sender: FDA-Public Use
  Company Number: DE-UCBSA-2024020886

PATIENT
  Age: 14 Year
  Sex: Male

DRUGS (3)
  1. FENFLURAMINE HYDROCHLORIDE [Suspect]
     Active Substance: FENFLURAMINE HYDROCHLORIDE
     Indication: Partial seizures
     Dosage: 0.2 MILLIGRAM PER KILOGRAM PER DAYUNK, ONCE DAILY (QD)
  2. FENFLURAMINE HYDROCHLORIDE [Suspect]
     Active Substance: FENFLURAMINE HYDROCHLORIDE
     Indication: Off label use
     Dosage: HIGH DOSAGE
  3. TOPIRAMATE [Concomitant]
     Active Substance: TOPIRAMATE
     Indication: Partial seizures
     Dosage: 2.35 MILLIGRAM PER KILOGRAM PER DAY

REACTIONS (2)
  - Partial seizures [Recovering/Resolving]
  - Off label use [Unknown]
